FAERS Safety Report 6595837-7 (Version None)
Quarter: 2010Q1

REPORT INFORMATION
  Report Type: 
  Country: None (occurrence: None)
  Receive Date: 20100204
  Receipt Date: 20091029
  Transmission Date: 20100710
  Serious: No
  Sender: FDA-Public Use
  Company Number: 2009-08173

PATIENT
  Age: 85 Year
  Sex: Male

DRUGS (14)
  1. RAPAFLO [Suspect]
     Indication: BENIGN PROSTATIC HYPERPLASIA
     Dosage: 8 MG, DAILY, ORAL
     Route: 048
     Dates: start: 20090301, end: 20090918
  2. LISINOPRIL [Concomitant]
  3. BISOPROLOL FUMARATE [Concomitant]
  4. LIPITOR [Concomitant]
  5. METFORMIN HCL [Concomitant]
  6. CELEBREX [Concomitant]
  7. PREDNISONE TAB [Concomitant]
  8. FLOMAX /00889901/ (MORNIFLUMATE) [Concomitant]
  9. AVODART [Concomitant]
  10. COUMADIN [Concomitant]
  11. AMOXICILLIN [Concomitant]
  12. ASPIRIN [Concomitant]
  13. TYLENOL /00020001/ (PARACETAMOL) [Concomitant]
  14. GLIPIZIDE [Concomitant]

REACTIONS (11)
  - ASTHENIA [None]
  - BLOOD GLUCOSE ABNORMAL [None]
  - BLOOD UREA INCREASED [None]
  - CARBON DIOXIDE DECREASED [None]
  - CRYSTAL URINE PRESENT [None]
  - DYSPNOEA [None]
  - FATIGUE [None]
  - GLOMERULAR FILTRATION RATE DECREASED [None]
  - HIGH DENSITY LIPOPROTEIN DECREASED [None]
  - RED BLOOD CELL COUNT DECREASED [None]
  - URINE ANALYSIS ABNORMAL [None]
